FAERS Safety Report 15877775 (Version 3)
Quarter: 2019Q1

REPORT INFORMATION
  Report Type: Spontaneous
  Country: CA (occurrence: CA)
  Receive Date: 20190128
  Receipt Date: 20190313
  Transmission Date: 20190417
  Serious: Yes (Other)
  Sender: FDA-Public Use
  Company Number: CA-ROCHE-2249164

PATIENT
  Age: 44 Year
  Sex: Female

DRUGS (5)
  1. XOLAIR [Suspect]
     Active Substance: OMALIZUMAB
     Indication: ASTHMA
     Route: 058
     Dates: start: 20160316
  2. SYMBICORT [Concomitant]
     Active Substance: BUDESONIDE\FORMOTEROL FUMARATE DIHYDRATE
     Indication: PRODUCT USED FOR UNKNOWN INDICATION
     Dosage: UNK
     Route: 065
  3. VENTOLIN [Concomitant]
     Active Substance: ALBUTEROL SULFATE
     Indication: PRODUCT USED FOR UNKNOWN INDICATION
     Dosage: UNK
     Route: 065
  4. VENTOLIN [Concomitant]
     Active Substance: ALBUTEROL SULFATE
     Indication: ASTHMA
     Dosage: PUFFER 10-12 PER WEEK ON AVERAGE
     Route: 065
  5. XOLAIR [Suspect]
     Active Substance: OMALIZUMAB
     Route: 058
     Dates: start: 20161013

REACTIONS (16)
  - Burning sensation [Recovered/Resolved]
  - Feeling hot [Recovered/Resolved]
  - Pneumonia [Unknown]
  - Chest pain [Unknown]
  - Asthma [Unknown]
  - Cough [Unknown]
  - Femur fracture [Unknown]
  - Forced expiratory volume decreased [Not Recovered/Not Resolved]
  - Urticaria [Recovered/Resolved]
  - Anxiety [Unknown]
  - Headache [Recovering/Resolving]
  - Chest discomfort [Unknown]
  - Pruritus [Recovered/Resolved]
  - Weight increased [Unknown]
  - Nausea [Recovering/Resolving]
  - Nasal disorder [Unknown]

NARRATIVE: CASE EVENT DATE: 20160316
